FAERS Safety Report 6895916-0 (Version None)
Quarter: 2010Q3

REPORT INFORMATION
  Report Type: 
  Country: None (occurrence: None)
  Receive Date: 20100802
  Receipt Date: 20100723
  Transmission Date: 20110219
  Serious: Yes (Other)
  Sender: FDA-Public Use
  Company Number: GXKR2010GB08269

PATIENT
  Age: 82 Year
  Sex: Female

DRUGS (17)
  1. GABAPENTIN [Suspect]
     Indication: BACK PAIN
     Dosage: 300 MG, UNK
     Route: 048
     Dates: start: 20100510, end: 20100516
  2. GABAPENTIN [Suspect]
     Indication: LUMBAR SPINAL STENOSIS
  3. ALENDRONIC ACID [Concomitant]
     Dosage: 70 MG, QW
  4. AMITRIPTYLINE HYDROCHLORIDE [Concomitant]
     Dosage: 10 MG, QD
  5. AMLODIPINE [Concomitant]
     Dosage: 10 MG, QD
  6. ACETYLSALICYLIC ACID SRT [Concomitant]
     Dosage: 75 MG, QD
  7. BISOPROLOL [Concomitant]
     Dosage: 5 MG, QD
     Route: 048
  8. CALCICHEW D3 [Concomitant]
     Dosage: 1 DF, BID
     Route: 048
  9. CLOTRIMAZOLE [Concomitant]
     Indication: CANDIDIASIS
     Dosage: 1 DF, QID
     Route: 061
     Dates: start: 20100517
  10. DIPYRIDAMOLE [Concomitant]
     Dosage: 200 MG, BID
     Route: 048
  11. FUROSEMIDE [Concomitant]
     Dosage: 40 MG, QD
  12. LACTULOSE [Concomitant]
     Indication: CONSTIPATION
     Dosage: 10 MG, BID
     Route: 048
     Dates: start: 20100517
  13. LANSOPRAZOLE [Concomitant]
     Dosage: 30 MG, QD
  14. LEVOTHYROXINE SODIUM [Concomitant]
     Dosage: 100 UG, QD
     Route: 048
  15. MORPHINE SULFATE [Concomitant]
     Indication: PAIN
     Dosage: 10 MG, BID
     Route: 048
     Dates: start: 20100513
  16. PREDNISOLONE [Concomitant]
     Dosage: 7.5 MG, QD
  17. SENNA [Concomitant]
     Indication: CONSTIPATION
     Dosage: 15 MG, QD
     Route: 048
     Dates: start: 20100517

REACTIONS (3)
  - ALANINE AMINOTRANSFERASE INCREASED [None]
  - BLOOD ALKALINE PHOSPHATASE INCREASED [None]
  - HEPATITIS [None]
